FAERS Safety Report 11171998 (Version 1)
Quarter: 2015Q2

REPORT INFORMATION
  Report Type: Spontaneous
  Country: US (occurrence: US)
  Receive Date: 20150608
  Receipt Date: 20150608
  Transmission Date: 20150821
  Serious: No
  Sender: FDA-Public Use
  Company Number: US-TARO-2015TAR00293

PATIENT
  Age: 5 Year
  Sex: Female
  Weight: 20.41 kg

DRUGS (2)
  1. CHILDRENS CETIRIZINE HYDROCHLORIDE SUGAR FREE GRAPE [Suspect]
     Active Substance: CETIRIZINE HYDROCHLORIDE
     Indication: MULTIPLE ALLERGIES
     Dosage: 5 ML, TWICE
     Route: 048
     Dates: start: 20150402, end: 20150402
  2. CHILDRENS CETIRIZINE HYDROCHLORIDE SUGAR FREE GRAPE [Suspect]
     Active Substance: CETIRIZINE HYDROCHLORIDE
     Dosage: 5 ML, ONCE
     Route: 048
     Dates: start: 20150403, end: 20150403

REACTIONS (3)
  - Ocular hyperaemia [Unknown]
  - Accidental overdose [Unknown]
  - Eye swelling [Unknown]

NARRATIVE: CASE EVENT DATE: 20150403
